FAERS Safety Report 21567155 (Version 2)
Quarter: 2022Q4

REPORT INFORMATION
  Report Type: Spontaneous
  Country: US (occurrence: US)
  Receive Date: 20221108
  Receipt Date: 20221111
  Transmission Date: 20230112
  Serious: No
  Sender: FDA-Public Use
  Company Number: US-SA-SAC20221101002363

PATIENT
  Age: 49 Year
  Sex: Female

DRUGS (9)
  1. DUPIXENT [Suspect]
     Active Substance: DUPILUMAB
     Indication: Asthma
     Dosage: 300 MG, QOW
     Route: 058
     Dates: start: 202203
  2. SUCRALFATE [Concomitant]
     Active Substance: SUCRALFATE
  3. PREDNISONE [Concomitant]
     Active Substance: PREDNISONE
  4. ALBUTEROL SULFATE [Concomitant]
     Active Substance: ALBUTEROL SULFATE
  5. PROMETHAZINE HYDROCHLORIDE [Concomitant]
     Active Substance: PROMETHAZINE HYDROCHLORIDE
  6. AMLODIPINE BESYLATE [Concomitant]
     Active Substance: AMLODIPINE BESYLATE
  7. CARISOPRODOL [Concomitant]
     Active Substance: CARISOPRODOL
  8. JARDIANCE [Concomitant]
     Active Substance: EMPAGLIFLOZIN
  9. OXYGEN [Concomitant]
     Active Substance: OXYGEN

REACTIONS (4)
  - Injection site pain [Unknown]
  - Dyspnoea [Unknown]
  - Asthma [Unknown]
  - Therapeutic response decreased [Unknown]
